FAERS Safety Report 9365118 (Version 1)
Quarter: 2013Q2

REPORT INFORMATION
  Report Type: Spontaneous
  Country: US (occurrence: US)
  Receive Date: 20130624
  Receipt Date: 20130624
  Transmission Date: 20140414
  Serious: No
  Sender: FDA-Public Use
  Company Number: US-B.I. PHARMACEUTICALS,INC./RIDGEFIELD-2013-BI-17471BP

PATIENT
  Age: 74 Year
  Sex: Female
  Weight: 79 kg

DRUGS (10)
  1. PRADAXA [Suspect]
     Indication: ATRIAL FIBRILLATION
     Dosage: 300 MG
     Route: 048
     Dates: start: 2010
  2. ATENOLOL [Concomitant]
     Indication: HYPERTENSION
     Dosage: 50 MG
     Route: 048
  3. DIGOXIN [Concomitant]
     Indication: CARDIAC DISORDER
     Dosage: 0.125 MG
     Route: 048
  4. OSCAL [Concomitant]
     Route: 048
  5. FISH OIL [Concomitant]
     Route: 048
  6. MULTIVITAMIN [Concomitant]
     Route: 048
  7. PREDNISONE [Concomitant]
     Indication: MYASTHENIA GRAVIS
     Dosage: 10 MG
     Route: 048
  8. LEVOTHYROXINE [Concomitant]
     Indication: THYROID DISORDER
     Route: 048
  9. DIOVAN/HCTZ [Concomitant]
     Indication: HYPERTENSION
     Route: 048
  10. LIPITOR [Concomitant]
     Indication: BLOOD CHOLESTEROL INCREASED
     Dosage: 10 MG
     Route: 048

REACTIONS (1)
  - Memory impairment [Not Recovered/Not Resolved]
